FAERS Safety Report 5350700-4 (Version None)
Quarter: 2007Q2

REPORT INFORMATION
  Report Type: 
  Country: None (occurrence: None)
  Receive Date: 20070606
  Receipt Date: 20070606
  Transmission Date: 20071010
  Serious: Yes (Hospitalization)
  Sender: FDA-Public Use
  Company Number: None

PATIENT
  Age: 50 Year
  Sex: Female
  Weight: 62.1428 kg

DRUGS (1)
  1. PREMARIN [Suspect]
     Indication: HYSTERECTOMY
     Dosage: ONE ONCE A DAY
     Dates: start: 20070417, end: 20070522

REACTIONS (3)
  - HEADACHE [None]
  - HYPOAESTHESIA [None]
  - PARAESTHESIA [None]
